FAERS Safety Report 6670713-X (Version None)
Quarter: 2010Q2

REPORT INFORMATION
  Report Type: 
  Country: None (occurrence: None)
  Receive Date: 20100407
  Receipt Date: 20100331
  Transmission Date: 20101027
  Serious: Yes (Other)
  Sender: FDA-Public Use
  Company Number: US-B.I. PHARMACEUTICALS,INC./RIDGEFIELD-2010-BP-03159BP

PATIENT
  Sex: Female

DRUGS (8)
  1. COMBIVENT [Suspect]
     Indication: BRONCHITIS CHRONIC
     Route: 055
     Dates: start: 20050101
  2. CELEBREX [Concomitant]
     Indication: ARTHRITIS
  3. NEURONTIN [Concomitant]
     Indication: ARTHRITIS
  4. ATENOLOL [Concomitant]
     Indication: HYPERTENSION
  5. LISINOPRIL [Concomitant]
     Indication: HYPERTENSION
  6. HYDROCHLOROTHIAZINE [Concomitant]
     Indication: HYPERTENSION
  7. SYNTHROID [Concomitant]
     Indication: HYPOTHYROIDISM
  8. EYE DROPS (UNSPECIFIED) [Concomitant]
     Indication: CORNEAL TRANSPLANT

REACTIONS (6)
  - CORNEAL DISORDER [None]
  - DYSPNOEA [None]
  - NASAL CONGESTION [None]
  - PRODUCTIVE COUGH [None]
  - RHINORRHOEA [None]
  - VISUAL ACUITY REDUCED [None]
